FAERS Safety Report 19894433 (Version 1)
Quarter: 2021Q3

REPORT INFORMATION
  Report Type: Spontaneous
  Country: US (occurrence: US)
  Receive Date: 20210928
  Receipt Date: 20210928
  Transmission Date: 20211014
  Serious: No
  Sender: FDA-Public Use
  Company Number: None

PATIENT
  Age: 38 Year
  Sex: Male

DRUGS (1)
  1. CAPECITABINE TAB 500MG [Suspect]
     Active Substance: CAPECITABINE
     Route: 048
     Dates: start: 20210920, end: 20210923

REACTIONS (3)
  - Skin discolouration [None]
  - Heart rate decreased [None]
  - Cardiac discomfort [None]

NARRATIVE: CASE EVENT DATE: 20210922
